FAERS Safety Report 6037884-X (Version None)
Quarter: 2009Q1

REPORT INFORMATION
  Report Type: 
  Country: None (occurrence: None)
  Receive Date: 20090113
  Receipt Date: 20090113
  Transmission Date: 20090719
  Serious: No
  Sender: FDA-Public Use
  Company Number: None

PATIENT
  Age: 78 Year
  Sex: Female
  Weight: 58.9676 kg

DRUGS (1)
  1. DEPAKOTE [Suspect]
     Indication: CONVULSION
     Dosage: 250 MG 3 TIMES A DAY
     Dates: start: 19860101, end: 20080101

REACTIONS (7)
  - FALL [None]
  - SPINAL FRACTURE [None]
  - TREMOR [None]
  - VERTIGO [None]
  - WALKING AID USER [None]
  - WHEELCHAIR USER [None]
  - WRIST FRACTURE [None]
